FAERS Safety Report 7477550-7 (Version None)
Quarter: 2011Q2

REPORT INFORMATION
  Report Type: 
  Country: None (occurrence: None)
  Receive Date: 20110511
  Receipt Date: 20110511
  Transmission Date: 20111010
  Serious: Yes (Other)
  Sender: FDA-Public Use
  Company Number: None

PATIENT
  Age: 72 Year
  Sex: Female
  Weight: 108 kg

DRUGS (12)
  1. OXYCODONE HCL [Concomitant]
  2. HYDROMORPHONE HCL [Concomitant]
  3. ZOSYN [Concomitant]
  4. ONDANSETRON [Concomitant]
  5. VANCOMYCIN [Suspect]
     Indication: CELLULITIS
     Dosage: 1500MG Q12 HOURS IV PIGGYBACK
     Route: 042
     Dates: start: 20110310, end: 20110321
  6. VANCOMYCIN [Suspect]
  7. METFORMIN [Concomitant]
  8. GABAPENTIN [Concomitant]
  9. METOPROLOL SUCCINATE [Concomitant]
  10. ENOXAPARIN [Concomitant]
  11. PLAVIX [Concomitant]
  12. ASPIRIN [Concomitant]

REACTIONS (2)
  - DIALYSIS [None]
  - BLOOD CREATININE INCREASED [None]
